FAERS Safety Report 14119742 (Version 2)
Quarter: 2018Q1

REPORT INFORMATION
  Report Type: Report from Study
  Country: US (occurrence: US)
  Receive Date: 20171024
  Receipt Date: 20180216
  Transmission Date: 20180508
  Serious: Yes (Other)
  Sender: FDA-Public Use
  Company Number: PHEH2017US033923

PATIENT
  Sex: Female

DRUGS (1)
  1. COSENTYX [Suspect]
     Active Substance: SECUKINUMAB
     Indication: PSORIATIC ARTHROPATHY
     Dosage: 150 MG, QMO
     Route: 058

REACTIONS (11)
  - Pneumonia [Recovered/Resolved]
  - Nasopharyngitis [Unknown]
  - Blindness [Unknown]
  - Nervousness [Unknown]
  - Sinusitis [Unknown]
  - Diarrhoea [Unknown]
  - Inappropriate schedule of drug administration [Unknown]
  - Irritable bowel syndrome [Unknown]
  - Malaise [Unknown]
  - Memory impairment [Unknown]
  - Swelling face [Unknown]
